FAERS Safety Report 15364078 (Version 2)
Quarter: 2018Q4

REPORT INFORMATION
  Report Type: Report from Study
  Country: US (occurrence: US)
  Receive Date: 20180908
  Receipt Date: 20181022
  Transmission Date: 20190204
  Serious: Yes (Other)
  Sender: FDA-Public Use
  Company Number: US-AMGEN-USASL2018122091

PATIENT
  Age: 56 Year
  Sex: Male
  Weight: 117.91 kg

DRUGS (7)
  1. ENBREL [Suspect]
     Active Substance: ETANERCEPT
     Indication: PSORIASIS
     Dosage: 50 MG, QWK
     Route: 030
     Dates: start: 20171102
  2. STELARA [Concomitant]
     Active Substance: USTEKINUMAB
     Dosage: UNK
  3. DOVONEX [Concomitant]
     Active Substance: CALCIPOTRIENE
     Dosage: UNK
  4. ENBREL [Suspect]
     Active Substance: ETANERCEPT
     Indication: RHEUMATOID ARTHRITIS
     Dosage: 50 MG, QWK
     Route: 030
  5. METHOTREXATE. [Concomitant]
     Active Substance: METHOTREXATE
     Dosage: UNK
  6. CLOBETASOL [Concomitant]
     Active Substance: CLOBETASOL
     Dosage: UNK
  7. ENBREL [Suspect]
     Active Substance: ETANERCEPT
     Indication: PSORIATIC ARTHROPATHY

REACTIONS (12)
  - Diffuse idiopathic skeletal hyperostosis [Unknown]
  - Osteoarthritis [Unknown]
  - Clavicle fracture [Unknown]
  - Infection [Unknown]
  - Thermal burn [Unknown]
  - Skin disorder [Unknown]
  - Impaired healing [Unknown]
  - Skin laceration [Unknown]
  - Fall [Unknown]
  - Psoriasis [Unknown]
  - Road traffic accident [Unknown]
  - Rib fracture [Unknown]

NARRATIVE: CASE EVENT DATE: 201712
